FAERS Safety Report 25680873 (Version 1)
Quarter: 2025Q3

REPORT INFORMATION
  Report Type: Spontaneous
  Country: US (occurrence: US)
  Receive Date: 20250814
  Receipt Date: 20250814
  Transmission Date: 20251020
  Serious: Yes (Hospitalization, Other)
  Sender: AUROBINDO
  Company Number: US-MLMSERVICE-20250731-PI592412-00232-2

PATIENT
  Age: 75 Year
  Sex: Female

DRUGS (3)
  1. PREDNISONE [Suspect]
     Active Substance: PREDNISONE
     Indication: Gout
     Dosage: 5 MILLIGRAM, ONCE A DAY (INITIATED LOW-DOSE PREDNISONE)
     Route: 065
     Dates: start: 2023
  2. KRYSTEXXA [Suspect]
     Active Substance: PEGLOTICASE
     Indication: Gout
     Route: 065
     Dates: start: 2023, end: 2024
  3. CELLCEPT [Suspect]
     Active Substance: MYCOPHENOLATE MOFETIL
     Indication: Gout
     Route: 065
     Dates: start: 2024, end: 2024

REACTIONS (4)
  - Pseudomonas infection [Unknown]
  - Staphylococcal bacteraemia [Recovering/Resolving]
  - Osteomyelitis [Unknown]
  - Abscess limb [Recovering/Resolving]

NARRATIVE: CASE EVENT DATE: 20240101
